FAERS Safety Report 14259262 (Version 1)
Quarter: 2017Q4

REPORT INFORMATION
  Report Type: Not Available
  Country: US (occurrence: US)
  Receive Date: 20171207
  Receipt Date: 20171207
  Transmission Date: 20180321
  Serious: Yes (Hospitalization)
  Sender: FDA-Public Use
  Company Number: US-NEUROCRINE BIOSCIENCES INC.-2017NBI01696

PATIENT
  Age: 68 Year
  Sex: Female

DRUGS (30)
  1. XARELTO [Concomitant]
     Active Substance: RIVAROXABAN
  2. FLORASTOR [Concomitant]
     Active Substance: SACCHAROMYCES CEREVISIAE
  3. METANX [Concomitant]
     Active Substance: LEVOMEFOLATE CALCIUM\METHYLCOBALAMIN\PYRIDOXAL PHOSPHATE ANHYDROUS
  4. AMBIEN [Concomitant]
     Active Substance: ZOLPIDEM TARTRATE
  5. BISCOLAX [Concomitant]
     Active Substance: BISACODYL
  6. MORPHINE [Concomitant]
     Active Substance: MORPHINE
  7. INGREZZA [Suspect]
     Active Substance: VALBENAZINE
     Route: 048
     Dates: start: 20171003
  8. DILTIAZEM CD [Concomitant]
     Active Substance: DILTIAZEM
  9. TRAZODONE [Concomitant]
     Active Substance: TRAZODONE HYDROCHLORIDE
  10. OMEPRAZOLE. [Concomitant]
     Active Substance: OMEPRAZOLE
  11. ZYRTEC [Concomitant]
     Active Substance: CETIRIZINE HYDROCHLORIDE
  12. PROCTOZONE-HC [Concomitant]
     Active Substance: HYDROCORTISONE
  13. INGREZZA [Suspect]
     Active Substance: VALBENAZINE
     Indication: PRODUCT USED FOR UNKNOWN INDICATION
     Route: 048
     Dates: start: 20170925, end: 20171002
  14. TRIUMEQ [Concomitant]
     Active Substance: ABACAVIR SULFATE\DOLUTEGRAVIR SODIUM\LAMIVUDINE
  15. FAMOTIDINE. [Concomitant]
     Active Substance: FAMOTIDINE
  16. HALOPERIDOL. [Concomitant]
     Active Substance: HALOPERIDOL
  17. VITAMIN D3 [Concomitant]
     Active Substance: CHOLECALCIFEROL
  18. THERAGRAN-M [Concomitant]
     Active Substance: VITAMINS
  19. TYLENOL [Concomitant]
     Active Substance: ACETAMINOPHEN
  20. ROBAFEN DM [Concomitant]
  21. CLONAZEPAM. [Concomitant]
     Active Substance: CLONAZEPAM
  22. GLUCAGON EMERGENCY [Concomitant]
  23. DULOXETINE. [Concomitant]
     Active Substance: DULOXETINE
  24. FISH OIL [Concomitant]
     Active Substance: FISH OIL
  25. FLECTOR [Concomitant]
     Active Substance: DICLOFENAC EPOLAMINE
  26. IRON [Concomitant]
     Active Substance: IRON
  27. ATORVASTATIN [Concomitant]
     Active Substance: ATORVASTATIN
  28. MILK OF MAGNESIA [Concomitant]
     Active Substance: MAGNESIUM HYDROXIDE
  29. ZOFRAN [Concomitant]
     Active Substance: ONDANSETRON HYDROCHLORIDE
  30. PROCRIT [Concomitant]
     Active Substance: ERYTHROPOIETIN

REACTIONS (1)
  - Hospitalisation [Unknown]

NARRATIVE: CASE EVENT DATE: 20171118
